FAERS Safety Report 4876175-7 (Version None)
Quarter: 2006Q1

REPORT INFORMATION
  Report Type: 
  Country: None (occurrence: None)
  Receive Date: 20060106
  Receipt Date: 20051223
  Transmission Date: 20060701
  Serious: Yes (Hospitalization, Other)
  Sender: FDA-Public Use
  Company Number: 430014M05FRA

PATIENT
  Age: 60 Year
  Sex: Female

DRUGS (3)
  1. NOVANTRONE [Suspect]
     Indication: BREAST CANCER
     Dosage: 20 MG, 1 IN 1 CYCLE, INTRAVENOUS
     Route: 042
     Dates: start: 19940101, end: 19940101
  2. CYCLOPHOSPHAMIDE [Suspect]
     Indication: BREAST CANCER
     Dosage: 850 MG, 1 IN 1 CYCLE, INTRAVENOUS
     Route: 042
     Dates: start: 19940101, end: 19940101
  3. FLUOROURACIL [Suspect]
     Indication: BREAST CANCER
     Dosage: 850 MG, 1 IN 1 CYCLE , INTRAVENOUS
     Route: 042
     Dates: start: 19940101, end: 19940101

REACTIONS (2)
  - B-CELL LYMPHOMA STAGE I [None]
  - BREAST CANCER RECURRENT [None]
